FAERS Safety Report 20485919 (Version 7)
Quarter: 2022Q3

REPORT INFORMATION
  Report Type: Report from Study
  Country: US (occurrence: US)
  Receive Date: 20220217
  Receipt Date: 20220706
  Transmission Date: 20221027
  Serious: Yes (Hospitalization, Other)
  Sender: FDA-Public Use
  Company Number: US-NOVARTISPH-NVSC2022US036094

PATIENT
  Sex: Female

DRUGS (4)
  1. ENTRESTO [Suspect]
     Active Substance: SACUBITRIL\VALSARTAN
     Indication: Product used for unknown indication
     Dosage: 1 DOSAGE FORM, BID
     Route: 048
     Dates: start: 202110
  2. ENTRESTO [Suspect]
     Active Substance: SACUBITRIL\VALSARTAN
     Dosage: 1 DOSAGE FORM, BID
     Route: 048
  3. MELOXICAM [Suspect]
     Active Substance: MELOXICAM
     Indication: Product used for unknown indication
     Dosage: UNK
     Route: 065
  4. DOXYCYCLINE [Suspect]
     Active Substance: DOXYCYCLINE
     Indication: Product used for unknown indication
     Dosage: UNK
     Route: 065

REACTIONS (17)
  - Fluid retention [Recovering/Resolving]
  - Impaired gastric emptying [Unknown]
  - Abdominal distension [Unknown]
  - Vomiting [Unknown]
  - Malaise [Unknown]
  - Blood sodium decreased [Unknown]
  - Chest pain [Recovering/Resolving]
  - Stress [Unknown]
  - Anxiety [Unknown]
  - Sinusitis [Unknown]
  - Cough [Recovering/Resolving]
  - Bronchitis [Unknown]
  - Productive cough [Recovering/Resolving]
  - Chest discomfort [Unknown]
  - Eye inflammation [Unknown]
  - Vision blurred [Recovering/Resolving]
  - Fatigue [Unknown]
